FAERS Safety Report 17896483 (Version 1)
Quarter: 2020Q2

REPORT INFORMATION
  Report Type: Report from Study
  Country: None (occurrence: SA)
  Receive Date: 20200615
  Receipt Date: 20200615
  Transmission Date: 20200714
  Serious: Yes (Hospitalization)
  Sender: FDA-Public Use
  Company Number: SA-ABBVIE-20K-259-3445348-00

PATIENT
  Sex: Female

DRUGS (1)
  1. DUODOPA [Suspect]
     Active Substance: CARBIDOPA\LEVODOPA
     Indication: PARKINSON^S DISEASE
     Dosage: 4 ML/HR
     Route: 050
     Dates: start: 201907

REACTIONS (1)
  - Blood urine present [Recovering/Resolving]
